FAERS Safety Report 4990078-9 (Version None)
Quarter: 2006Q2

REPORT INFORMATION
  Report Type: 
  Country: None (occurrence: None)
  Receive Date: 20060503
  Receipt Date: 20050509
  Transmission Date: 20061013
  Serious: Yes (Hospitalization)
  Sender: FDA-Public Use
  Company Number: US-MERCK-0505USA01113

PATIENT
  Age: 57 Year
  Sex: Male
  Weight: 105 kg

DRUGS (2)
  1. VIOXX [Suspect]
     Indication: ARTHRALGIA
     Route: 048
     Dates: start: 20001101, end: 20040901
  2. ASPIRIN [Concomitant]
     Route: 065

REACTIONS (18)
  - ADVERSE EVENT [None]
  - ANAEMIA [None]
  - ANGINA PECTORIS [None]
  - ARTERIOSCLEROSIS [None]
  - ARTHROPATHY [None]
  - ASTHENIA [None]
  - BACK DISORDER [None]
  - BRONCHITIS [None]
  - CHEST PAIN [None]
  - CORONARY ARTERY INSUFFICIENCY [None]
  - CORONARY ARTERY STENOSIS [None]
  - DRUG INEFFECTIVE [None]
  - DRUG INTOLERANCE [None]
  - INTERVERTEBRAL DISC PROTRUSION [None]
  - KNEE ARTHROPLASTY [None]
  - LIMB INJURY [None]
  - MYOCARDIAL INFARCTION [None]
  - NEUROPATHY [None]
